FAERS Safety Report 22219972 (Version 1)
Quarter: 2023Q2

REPORT INFORMATION
  Report Type: Spontaneous
  Country: US (occurrence: None)
  Receive Date: 20230414
  Receipt Date: 20230414
  Transmission Date: 20230721
  Serious: No
  Sender: FDA-Public Use
  Company Number: None

PATIENT
  Sex: Male

DRUGS (1)
  1. REMICADE [Suspect]
     Active Substance: INFLIXIMAB
     Indication: Rheumatoid arthritis
     Dosage: OTHER STRENGTH : 100MG/VL;?OTHER FREQUENCY : EVERY 8 WEEKS;?OTHER ROUTE : INFUSION;?
     Route: 050
     Dates: start: 20221003

REACTIONS (6)
  - Joint swelling [None]
  - Arthralgia [None]
  - Condition aggravated [None]
  - Sensitivity to weather change [None]
  - Therapeutic product effect decreased [None]
  - Therapy change [None]
